FAERS Safety Report 8404889-0 (Version None)
Quarter: 2012Q2

REPORT INFORMATION
  Report Type: 
  Country: None (occurrence: None)
  Receive Date: 20120601
  Receipt Date: 20111018
  Transmission Date: 20120825
  Serious: No
  Sender: FDA-Public Use
  Company Number: US-ASTRAZENECA-2011SE46586

PATIENT
  Age: 50 Year
  Sex: Female

DRUGS (4)
  1. ATACAND HCT [Suspect]
     Dosage: 32+12.5 MG
     Route: 048
  2. ATACAND HCT [Suspect]
     Dosage: 32+12.5 MG
     Route: 048
  3. ATACAND HCT [Suspect]
     Dosage: 16+12.5 MG
     Route: 048
  4. DIARETIC [Concomitant]

REACTIONS (3)
  - LIMB DISCOMFORT [None]
  - ADVERSE DRUG REACTION [None]
  - BLOOD PRESSURE INCREASED [None]
